FAERS Safety Report 9536127 (Version 1)
Quarter: 2013Q2

REPORT INFORMATION
  Report Type: Spontaneous
  Country: US (occurrence: None)
  Receive Date: 20130507
  Receipt Date: 20130507
  Transmission Date: 20140414
  Serious: No
  Sender: FDA-Public Use
  Company Number: PHEH20127S023412

PATIENT
  Age: 62 Year
  Sex: Female
  Weight: 129.1 kg

DRUGS (13)
  1. AFINITOR (RAD) TABLET, 10MG [Suspect]
     Indication: BREAST CANCER
     Route: 048
     Dates: start: 20121121
  2. TYLENOL (PARACETAMOL) [Concomitant]
  3. FUROSEMIDE (FUROSEMIDE) [Concomitant]
  4. FEMARA (LETROZOLE) [Concomitant]
  5. ENALAPRIL (ENALAPRIL) [Concomitant]
  6. CARVEDILOL (CARVEDILOL) [Concomitant]
  7. LEVOTHYROXIN (LEVOTHYROXINE SODIUM) [Concomitant]
  8. VITAMIN B CO ALMUS (VITAMIN B COMPLEX) [Concomitant]
  9. NIACIN (NICOTINIC ACID) [Concomitant]
  10. MULTIVITAMINS (ASCORBIC ACID, ERGOCALCIFEROL, FOLIC AID, NICOTINAMIDE, PANTHENOL, RETINOL, RIBOFLAVIN, THIAMINE HYDROCHLORIDE) [Concomitant]
  11. XGEVA (DENOSUMAB) [Concomitant]
  12. VITAMIN B12 (CYANOCOBALAMIN) [Concomitant]
  13. ASPIRIN (ACETYLSALICYLIC ACID) [Concomitant]

REACTIONS (2)
  - Headache [None]
  - Neutropenia [None]
